FAERS Safety Report 7416426-8 (Version None)
Quarter: 2011Q2

REPORT INFORMATION
  Report Type: 
  Country: None (occurrence: None)
  Receive Date: 20110414
  Receipt Date: 20110404
  Transmission Date: 20111010
  Serious: Yes (Other)
  Sender: FDA-Public Use
  Company Number: US-ASTRAZENECA-2011SE18898

PATIENT
  Age: 65 Year
  Sex: Male
  Weight: 83.9 kg

DRUGS (12)
  1. TOPROL-XL [Suspect]
     Route: 048
  2. PLAVIX [Concomitant]
  3. TOPROL-XL [Suspect]
     Dosage: 25 MGS IN AM AND 37.5 MGS IN THE EVENING
     Route: 048
  4. TRICOR [Concomitant]
  5. TOPROL-XL [Suspect]
     Route: 048
  6. TOPROL-XL [Suspect]
     Dosage: 25 MGS IN AM AND 37.5 MGS IN THE EVENING
     Route: 048
  7. CRESTOR [Concomitant]
  8. TOPROL-XL [Suspect]
     Route: 048
  9. TOPROL-XL [Suspect]
     Route: 048
  10. TOPROL-XL [Suspect]
     Indication: FLUID OVERLOAD
     Route: 048
     Dates: start: 20050101
  11. TOPROL-XL [Suspect]
     Indication: HYPERTENSION
     Route: 048
     Dates: start: 20050101
  12. LOTENSIN [Concomitant]

REACTIONS (4)
  - INCORRECT DOSE ADMINISTERED [None]
  - WEIGHT INCREASED [None]
  - CARDIAC FLUTTER [None]
  - DIZZINESS [None]
